FAERS Safety Report 10901647 (Version 1)
Quarter: 2015Q1

REPORT INFORMATION
  Report Type: Report from Study
  Country: IE (occurrence: IE)
  Receive Date: 20150310
  Receipt Date: 20150310
  Transmission Date: 20150721
  Serious: Yes (Hospitalization)
  Sender: FDA-Public Use
  Company Number: IE-ABBVIE-15K-229-1355076-00

PATIENT
  Age: 38 Year
  Sex: Male

DRUGS (1)
  1. HUMIRA [Suspect]
     Active Substance: ADALIMUMAB
     Indication: RHEUMATOID ARTHRITIS
     Route: 058
     Dates: start: 201412, end: 201501

REACTIONS (5)
  - Intestinal mass [Unknown]
  - Tonsillitis [Unknown]
  - Abdominal pain upper [Unknown]
  - Nausea [Unknown]
  - Appendicectomy [Unknown]

NARRATIVE: CASE EVENT DATE: 201501
